FAERS Safety Report 22151605 (Version 1)
Quarter: 2023Q1

REPORT INFORMATION
  Report Type: Spontaneous
  Country: FR (occurrence: FR)
  Receive Date: 20230329
  Receipt Date: 20230329
  Transmission Date: 20230418
  Serious: No
  Sender: FDA-Public Use
  Company Number: FR-PFIZER INC-202300126047

PATIENT
  Age: 13 Year
  Sex: Female

DRUGS (1)
  1. SOMATROPIN [Suspect]
     Active Substance: SOMATROPIN

REACTIONS (2)
  - Device physical property issue [Unknown]
  - Device issue [Unknown]
